FAERS Safety Report 7523546-6 (Version None)
Quarter: 2011Q2

REPORT INFORMATION
  Report Type: 
  Country: None (occurrence: None)
  Receive Date: 20110603
  Receipt Date: 20110525
  Transmission Date: 20111010
  Serious: Yes (Other)
  Sender: FDA-Public Use
  Company Number: SG-ASTRAZENECA-2011SE32512

PATIENT
  Age: 70 Year
  Sex: Male

DRUGS (5)
  1. TERAZOSIN HCL [Concomitant]
  2. TELMISARTAN [Concomitant]
  3. CRESTOR [Suspect]
     Indication: HYPERCHOLESTEROLAEMIA
     Route: 048
     Dates: start: 20110101
  4. ASPIRIN [Concomitant]
  5. NORVASC [Concomitant]

REACTIONS (2)
  - PRURITUS [None]
  - SLEEP DISORDER DUE TO GENERAL MEDICAL CONDITION, INSOMNIA TYPE [None]
